FAERS Safety Report 23492734 (Version 1)
Quarter: 2024Q1

REPORT INFORMATION
  Report Type: Spontaneous
  Country: IT (occurrence: IT)
  Receive Date: 20240207
  Receipt Date: 20240207
  Transmission Date: 20240410
  Serious: Yes (Other)
  Sender: FDA-Public Use
  Company Number: IT-GERMAN-LIT/ITA/24/0001322

PATIENT
  Age: 16 Year
  Sex: Male

DRUGS (3)
  1. AZACITIDINE [Suspect]
     Active Substance: AZACITIDINE
     Indication: Acute myeloid leukaemia
  2. VENETOCLAX [Suspect]
     Active Substance: VENETOCLAX
     Indication: Acute myeloid leukaemia
     Dosage: STARTED AT A DOSE OF 100 MG/DAY AND GRADUALLY INCREASED BY 100 MG/DAY UP TO A DOSE OF 800 MG/DAY
  3. VENETOCLAX [Suspect]
     Active Substance: VENETOCLAX
     Dosage: STARTED AT A DOSE OF 100 MG/DAY AND GRADUALLY INCREASED BY 100 MG/DAY UP TO A DOSE OF 800 MG/DAY

REACTIONS (5)
  - Urticaria [Recovered/Resolved]
  - Staphylococcal sepsis [Unknown]
  - Escherichia sepsis [Unknown]
  - Stomatitis [Unknown]
  - Stenotrophomonas infection [Unknown]
